FAERS Safety Report 6299275-6 (Version None)
Quarter: 2009Q3

REPORT INFORMATION
  Report Type: 
  Country: None (occurrence: None)
  Receive Date: 20090806
  Receipt Date: 20090803
  Transmission Date: 20100115
  Serious: Yes (Hospitalization)
  Sender: FDA-Public Use
  Company Number: NZ-ASTRAZENECA-2009SE06488

PATIENT
  Age: 18018 Day
  Sex: Female

DRUGS (5)
  1. MEROPENEM [Suspect]
     Route: 042
     Dates: start: 20010127, end: 20010202
  2. AMPHOTERICIN B [Suspect]
     Route: 042
     Dates: start: 20010130, end: 20010131
  3. VANCOMYCIN [Concomitant]
     Route: 042
     Dates: start: 20010128, end: 20010202
  4. MORPHINE SULFATE [Concomitant]
     Route: 048
     Dates: start: 20010128, end: 20010130
  5. FILGRASTIM (G-CSF) [Concomitant]
     Route: 058
     Dates: start: 20010123, end: 20010204

REACTIONS (2)
  - ABNORMAL BEHAVIOUR [None]
  - ENCEPHALOPATHY [None]
